FAERS Safety Report 20029028 (Version 3)
Quarter: 2022Q1

REPORT INFORMATION
  Report Type: Spontaneous
  Country: US (occurrence: US)
  Receive Date: 20211103
  Receipt Date: 20220105
  Transmission Date: 20220423
  Serious: No
  Sender: FDA-Public Use
  Company Number: US-BIOGEN-2021BI01064238

PATIENT
  Sex: Female
  Weight: 90.800 kg

DRUGS (1)
  1. VUMERITY [Suspect]
     Active Substance: DIROXIMEL FUMARATE
     Indication: Multiple sclerosis
     Dosage: 2 CAPSULES OF 231 MG (462 MG) TWICE DAILY
     Route: 048

REACTIONS (2)
  - Product dose omission in error [Unknown]
  - Flushing [Recovered/Resolved]
